FAERS Safety Report 23191748 (Version 5)
Quarter: 2024Q1

REPORT INFORMATION
  Report Type: Other
  Country: US (occurrence: US)
  Receive Date: 20231116
  Receipt Date: 20240210
  Transmission Date: 20240410
  Serious: No
  Sender: FDA-Public Use
  Company Number: US-TRAVERE-2023TVT00626

PATIENT
  Sex: Male

DRUGS (4)
  1. FILSPARI [Suspect]
     Active Substance: SPARSENTAN
     Indication: IgA nephropathy
     Dosage: 200 MG
     Route: 048
     Dates: start: 20231014
  2. FILSPARI [Suspect]
     Active Substance: SPARSENTAN
     Indication: Type 2 diabetes mellitus
  3. Albumin IV [Concomitant]
  4. LASIX [Concomitant]
     Active Substance: FUROSEMIDE

REACTIONS (4)
  - Thirst [Unknown]
  - Generalised oedema [None]
  - Gastrooesophageal reflux disease [Unknown]
  - Ulcer [Unknown]
